FAERS Safety Report 4954634-6 (Version None)
Quarter: 2006Q1

REPORT INFORMATION
  Report Type: 
  Country: None (occurrence: None)
  Receive Date: 20060131
  Receipt Date: 20050922
  Transmission Date: 20060701
  Serious: Yes (Hospitalization)
  Sender: FDA-Public Use
  Company Number: WAES 0509USA03564

PATIENT
  Sex: Male

DRUGS (2)
  1. PRIMAXIN [Suspect]
     Indication: ENTEROBACTER PNEUMONIA
     Dosage: 500 MG/Q6H/IV
     Route: 042
  2. CANCIDAS [Concomitant]

REACTIONS (1)
  - CONVULSION [None]
